FAERS Safety Report 9402862 (Version 2)
Quarter: 2013Q3

REPORT INFORMATION
  Report Type: Report from Study
  Country: KR (occurrence: KR)
  Receive Date: 20130716
  Receipt Date: 20130726
  Transmission Date: 20140515
  Serious: Yes (Hospitalization)
  Sender: FDA-Public Use
  Company Number: KR-PFIZER INC-2013199498

PATIENT
  Age: 55 Year
  Sex: Male
  Weight: 66.4 kg

DRUGS (18)
  1. TEMSIROLIMUS [Suspect]
     Dosage: 25 MG, WEEKLY
     Dates: start: 20130305, end: 20130507
  2. TEMSIROLIMUS [Suspect]
     Dosage: 20 MG, WEEKLY
     Dates: start: 20130514, end: 20130625
  3. CARDIREN [Concomitant]
     Indication: HYPERTENSION
     Dosage: UNK
     Route: 048
     Dates: start: 2007
  4. CODIPINE [Concomitant]
     Indication: HYPERTENSION
     Dosage: UNK
     Route: 048
     Dates: start: 2007
  5. XYREN [Concomitant]
     Indication: PALPITATIONS
     Dosage: UNK
     Route: 048
     Dates: start: 2012
  6. CRESTOR [Concomitant]
     Indication: HYPERCHOLESTEROLAEMIA
     Dosage: UNK
     Route: 048
     Dates: start: 20130402
  7. CRESTOR [Concomitant]
     Indication: HYPERTRIGLYCERIDAEMIA
  8. CRESTOR [Concomitant]
     Indication: PROPHYLAXIS
  9. TRAJENTA [Concomitant]
     Indication: HYPERGLYCAEMIA
     Dosage: UNK
     Route: 048
     Dates: start: 20130416
  10. AMARYL [Concomitant]
     Indication: HYPERGLYCAEMIA
     Dosage: UNK
     Route: 048
     Dates: start: 20130611
  11. TANTUM [Concomitant]
     Indication: PROPHYLAXIS
     Dosage: UNK
     Dates: start: 20130303
  12. TANTUM [Concomitant]
     Indication: STOMATITIS
  13. UCERAX [Concomitant]
     Indication: RASH
     Dosage: UNK
     Route: 048
     Dates: start: 20130514
  14. UCERAX [Concomitant]
     Indication: PRURITUS
  15. PHENIRAMINE [Concomitant]
     Indication: RASH
     Dosage: UNK
     Route: 048
     Dates: start: 20130507
  16. PHENIRAMINE [Concomitant]
     Indication: PRURITUS
  17. EBASTEL [Concomitant]
     Indication: RASH
     Dosage: UNK
     Route: 048
     Dates: start: 20130514
  18. EBASTEL [Concomitant]
     Indication: PRURITUS

REACTIONS (1)
  - Lung infection [Recovered/Resolved]
